FAERS Safety Report 4386924-2 (Version None)
Quarter: 2004Q2

REPORT INFORMATION
  Report Type: 
  Country: None (occurrence: None)
  Receive Date: 20040629
  Receipt Date: 20040629
  Transmission Date: 20050107
  Serious: Yes (Hospitalization)
  Sender: FDA-Public Use
  Company Number: None

PATIENT
  Age: 63 Year
  Sex: Male
  Weight: 90.7194 kg

DRUGS (2)
  1. PROCARBAZINE [Suspect]
     Indication: BRAIN NEOPLASM
     Dosage: 2500 MGOVER 5D
     Dates: start: 20040511, end: 20040515
  2. THALIDOMIDE [Suspect]
     Indication: BRAIN NEOPLASM
     Dosage: 200 X7D, 300  X7D, 400X7D, 500X7D
     Dates: start: 20040511, end: 20040609

REACTIONS (4)
  - ASTHENIA [None]
  - DEEP VEIN THROMBOSIS [None]
  - DYSPNOEA [None]
  - PULMONARY EMBOLISM [None]
